FAERS Safety Report 11894977 (Version 3)
Quarter: 2016Q2

REPORT INFORMATION
  Report Type: Report from Study
  Country: US (occurrence: US)
  Receive Date: 20160107
  Receipt Date: 20160411
  Transmission Date: 20160815
  Serious: No
  Sender: FDA-Public Use
  Company Number: US-ABBVIE-15P-163-1476781-00

PATIENT
  Age: 75 Year
  Sex: Male
  Weight: 86.26 kg

DRUGS (12)
  1. DUOPA [Suspect]
     Active Substance: CARBIDOPA\LEVODOPA
     Indication: PARKINSON^S DISEASE
     Dosage: FLOW RATE (CONTINUOUS) 3 ML/HR
     Route: 050
     Dates: start: 20150917
  2. AZILECT [Concomitant]
     Active Substance: RASAGILINE MESYLATE
     Indication: PRODUCT USED FOR UNKNOWN INDICATION
     Dosage: 1 DOSE AS DIRECTED
     Route: 048
     Dates: start: 20150917
  3. VITAMIN B12 [Concomitant]
     Active Substance: CYANOCOBALAMIN
     Indication: PRODUCT USED FOR UNKNOWN INDICATION
  4. FISH OIL OTC [Concomitant]
     Indication: PRODUCT USED FOR UNKNOWN INDICATION
  5. EXELON [Concomitant]
     Active Substance: RIVASTIGMINE TARTRATE
     Indication: PRODUCT USED FOR UNKNOWN INDICATION
     Dosage: 1 DOSE AS DIRECTED
     Route: 061
     Dates: start: 20150917
  6. VITAMIN D3 [Concomitant]
     Active Substance: CHOLECALCIFEROL
     Indication: PRODUCT USED FOR UNKNOWN INDICATION
  7. EYE CAPS [Concomitant]
     Indication: PRODUCT USED FOR UNKNOWN INDICATION
  8. CARBIDOPA/LEVODOPA [Concomitant]
     Active Substance: CARBIDOPA\LEVODOPA
     Indication: PRODUCT USED FOR UNKNOWN INDICATION
     Dosage: 1 DOSE AS DIRECTED
     Route: 048
     Dates: start: 20150916
  9. LISINOPRIL HCTZ [Concomitant]
     Active Substance: HYDROCHLOROTHIAZIDE\LISINOPRIL
     Indication: PRODUCT USED FOR UNKNOWN INDICATION
     Route: 048
     Dates: start: 20150916
  10. CARBIDOPA. [Concomitant]
     Active Substance: CARBIDOPA
     Indication: PRODUCT USED FOR UNKNOWN INDICATION
  11. MIRALAX [Concomitant]
     Active Substance: POLYETHYLENE GLYCOL 3350
     Indication: PRODUCT USED FOR UNKNOWN INDICATION
  12. CITRACAL D FORT [Concomitant]
     Indication: PRODUCT USED FOR UNKNOWN INDICATION
     Dosage: 1 DOSE AS DIRECTED
     Route: 048
     Dates: start: 20150916

REACTIONS (6)
  - Device alarm issue [Recovered/Resolved]
  - Stoma site haemorrhage [Recovered/Resolved]
  - Medical device site discomfort [Not Recovered/Not Resolved]
  - Stoma site discharge [Recovering/Resolving]
  - Catheter site warmth [Not Recovered/Not Resolved]
  - Stoma site erythema [Not Recovered/Not Resolved]

NARRATIVE: CASE EVENT DATE: 201509
